FAERS Safety Report 17526645 (Version 2)
Quarter: 2020Q1

REPORT INFORMATION
  Report Type: Spontaneous
  Country: EE (occurrence: EE)
  Receive Date: 20200311
  Receipt Date: 20200330
  Transmission Date: 20200409
  Serious: Yes (Hospitalization, Other)
  Sender: FDA-Public Use
  Company Number: EE-JNJFOC-20200304914

PATIENT
  Age: 83 Year
  Sex: Female

DRUGS (2)
  1. DICLOFENAC [Suspect]
     Active Substance: DICLOFENAC
     Indication: ORTHOPAEDIC PROCEDURE
     Route: 048
     Dates: end: 2020
  2. RIVAROXABAN [Suspect]
     Active Substance: RIVAROXABAN
     Indication: ATRIAL FIBRILLATION
     Dosage: UNK
     Route: 048

REACTIONS (6)
  - Bronchitis [Recovered/Resolved]
  - Cough [Recovered/Resolved]
  - Haemoglobin decreased [Recovered/Resolved]
  - Orthopaedic procedure [Unknown]
  - Labelled drug-drug interaction medication error [Unknown]
  - Muscle haemorrhage [Recovered/Resolved]

NARRATIVE: CASE EVENT DATE: 2020
